FAERS Safety Report 8561317 (Version 2)
Quarter: 2012Q4

REPORT INFORMATION
  Report Type: 
  Country: US (occurrence: US)
  Receive Date: 20120514
  Receipt Date: 20120905
  Transmission Date: 20130627
  Serious: Yes (Hospitalization)
  Sender: FDA-Public Use
  Company Number: US-BAYER-2012-046819

PATIENT
  Age: 26 Year
  Sex: Female

DRUGS (4)
  1. YASMIN [Suspect]
     Dosage: UNK
     Dates: start: 200901, end: 200906
  2. OCELLA [Suspect]
     Dosage: UNK
     Dates: start: 200901, end: 200906
  3. YAZ [Suspect]
  4. NSAID^S [Concomitant]

REACTIONS (2)
  - Pulmonary embolism [None]
  - Injury [None]
